FAERS Safety Report 17366826 (Version 1)
Quarter: 2020Q1

REPORT INFORMATION
  Report Type: Spontaneous
  Country: IT (occurrence: IT)
  Receive Date: 20200204
  Receipt Date: 20200204
  Transmission Date: 20200409
  Serious: Yes (Other)
  Sender: FDA-Public Use
  Company Number: IT-PFIZER INC-2020046942

PATIENT
  Age: 70 Year
  Sex: Male

DRUGS (1)
  1. VINCRISTINA PFIZER ITALIA [Suspect]
     Active Substance: VINCRISTINE
     Indication: ACUTE LEUKAEMIA
     Dosage: 2 MG, CYCLIC
     Route: 042
     Dates: start: 20191210, end: 20191223

REACTIONS (1)
  - Neutropenia [Recovering/Resolving]

NARRATIVE: CASE EVENT DATE: 20191223
